FAERS Safety Report 8886746 (Version 3)
Quarter: 2012Q4

REPORT INFORMATION
  Report Type: 
  Country: CO (occurrence: CO)
  Receive Date: 20121105
  Receipt Date: 20121214
  Transmission Date: 20130627
  Serious: Yes (Other)
  Sender: FDA-Public Use
  Company Number: CO-SHIRE-ALL1-2012-05346

PATIENT
  Age: 6 Year
  Sex: Male
  Weight: 17 kg

DRUGS (9)
  1. ELAPRASE [Suspect]
     Indication: MUCOPOLYSACCHARIDOSIS II
     Dosage: 6 mg or 12mg , (alternating weeks)
     Route: 041
     Dates: start: 20120912
  2. CAPTOPRIL [Concomitant]
     Indication: MITRAL VALVE INCOMPETENCE
     Dosage: 6.25 mg, 2x/day:bid(tablet of 25 mg)
     Route: 048
  3. CHLORPHENIRAMINE MALEATE [Concomitant]
     Indication: RHINITIS ALLERGIC
     Dosage: 3 ml, 2x/day:bid(every 12HRS)
     Route: 048
  4. BECLOMETHASONE DIPROPIONATE        /00212602/ [Concomitant]
     Indication: BRONCHIAL DISORDER
     Dosage: 2 DF, 2x/day:bid(2 puffs every 12 hours)
     Route: 055
  5. CLEMASTINE [Concomitant]
     Indication: URTICARIA
     Dosage: 0.2 mg, One dose
     Route: 042
     Dates: start: 20121020, end: 20121020
  6. CLEMASTINE [Concomitant]
     Indication: PREMEDICATION
     Dosage: 0.2 mg, One dose
     Route: 042
     Dates: start: 20121026, end: 20121026
  7. CLEMASTINE [Concomitant]
     Dosage: 0.2 ml, One dose
     Route: 042
     Dates: start: 20121103, end: 20121103
  8. CLEMASTINE [Concomitant]
     Dosage: 0.3 ml, One dose
     Route: 042
     Dates: start: 20121110, end: 20121110
  9. LORATADINE [Concomitant]
     Indication: PREMEDICATION
     Dosage: 3 ml, UNK
     Route: 048
     Dates: start: 20121013

REACTIONS (11)
  - Xeroderma [Unknown]
  - Oxygen saturation decreased [Recovered/Resolved]
  - Cough [Recovered/Resolved]
  - Nausea [Recovered/Resolved]
  - Tachycardia [Recovered/Resolved]
  - Vomiting [Recovered/Resolved]
  - Erythema [Recovered/Resolved]
  - Infusion related reaction [Recovered/Resolved]
  - Odynophagia [Recovered/Resolved]
  - Pruritus [Recovered/Resolved]
  - Urticaria [Recovered/Resolved]
